FAERS Safety Report 12745458 (Version 2)
Quarter: 2016Q3

REPORT INFORMATION
  Report Type: Spontaneous
  Country: US (occurrence: US)
  Receive Date: 20160915
  Receipt Date: 20160927
  Transmission Date: 20161109
  Serious: No
  Sender: FDA-Public Use
  Company Number: US-PFIZER INC-2016427125

PATIENT
  Age: 52 Year
  Sex: Female

DRUGS (4)
  1. IBRANCE [Suspect]
     Active Substance: PALBOCICLIB
     Indication: NEOPLASM MALIGNANT
     Dosage: 125 MG, CYCLIC (DAILY FOR DAYS 1-21 EVERY 28 DAYS)
     Route: 048
     Dates: start: 201608
  2. TAMOXIFEN [Concomitant]
     Active Substance: TAMOXIFEN
     Dosage: UNK
  3. FASLODEX [Suspect]
     Active Substance: FULVESTRANT
     Dosage: 2 INJECTIONS
     Dates: start: 20160901
  4. VENLAFAXINE [Concomitant]
     Active Substance: VENLAFAXINE HYDROCHLORIDE
     Dosage: UNK

REACTIONS (8)
  - Injection site swelling [Recovering/Resolving]
  - Peripheral swelling [Unknown]
  - Rash [Recovering/Resolving]
  - Arthralgia [Unknown]
  - Gingival pain [Unknown]
  - Fatigue [Unknown]
  - Pruritus [Recovering/Resolving]
  - Nausea [Unknown]

NARRATIVE: CASE EVENT DATE: 201609
